FAERS Safety Report 10214952 (Version 1)
Quarter: 2014Q1

REPORT INFORMATION
  Report Type: Spontaneous
  Country: US (occurrence: None)
  Receive Date: 20140306
  Receipt Date: 20140306
  Transmission Date: 20141002
  Serious: Yes (Hospitalization)
  Sender: FDA-Public Use
  Company Number: 163-21880-13010805

PATIENT
  Age: 78 Year
  Sex: Male

DRUGS (11)
  1. REVLIMID [Suspect]
     Indication: MYELODYSPLASTIC SYNDROME
     Route: 048
     Dates: start: 201211
  2. PACKED RED BLOOD CELLS [Concomitant]
  3. PLATELETS (PLATELETS) [Concomitant]
  4. ACYCLOVIR (ACICLOVIR) (ACICLOVIR) [Concomitant]
  5. CIPRO [Concomitant]
  6. DOXEPIN (DOXEPIN) (DOXEPIN) [Concomitant]
  7. NEUROTRONIN [Concomitant]
  8. GEMFIBROZIL (GEMFIBROZIL) [Concomitant]
  9. LORTAB [Concomitant]
  10. ZOLOFT (SERTRALINE HYDROCHLORIDE) [Concomitant]
  11. ZANTAC (RANITIDINE HYDROCHLORIDE) [Concomitant]

REACTIONS (4)
  - Renal failure acute [None]
  - Febrile neutropenia [None]
  - Urinary tract infection enterococcal [None]
  - Renal cyst [None]
